FAERS Safety Report 16327532 (Version 1)
Quarter: 2019Q2

REPORT INFORMATION
  Report Type: Spontaneous
  Country: FR (occurrence: FR)
  Receive Date: 20190517
  Receipt Date: 20190517
  Transmission Date: 20190711
  Serious: Yes (Other)
  Sender: FDA-Public Use
  Company Number: FR-009507513-1905FRA006875

PATIENT
  Age: 56 Year
  Sex: Female
  Weight: 75 kg

DRUGS (4)
  1. OXALIPLATIN. [Suspect]
     Active Substance: OXALIPLATIN
     Indication: PANCREATIC CARCINOMA
     Dosage: 85 MILLIGRAM/SQ. METER, ONCE (FORMULATION:SOLUTION TO DILUTE FOR INFUSION)
     Route: 042
     Dates: start: 20170713, end: 20170713
  2. APREPITANT. [Suspect]
     Active Substance: APREPITANT
     Indication: PREMEDICATION
     Dosage: 125 MILLIGRAM, ONCE
     Route: 048
     Dates: start: 20170713, end: 20170713
  3. ONDANSETRON [Suspect]
     Active Substance: ONDANSETRON
     Indication: PREMEDICATION
     Dosage: 8 MILLIGRAM, ONCE
     Route: 042
     Dates: start: 20170713, end: 20170713
  4. METHYLPREDNISOLONE. [Suspect]
     Active Substance: METHYLPREDNISOLONE
     Indication: PREMEDICATION
     Dosage: 75 MILLIGRAM, ONCE
     Route: 042
     Dates: start: 20170713, end: 20170713

REACTIONS (3)
  - Oxygen saturation abnormal [Recovered/Resolved]
  - Tachycardia [Recovered/Resolved]
  - Dyspnoea [Recovered/Resolved]

NARRATIVE: CASE EVENT DATE: 20170713
